FAERS Safety Report 8308511-3 (Version None)
Quarter: 2012Q2

REPORT INFORMATION
  Report Type: 
  Country: None (occurrence: None)
  Receive Date: 20120424
  Receipt Date: 20110808
  Transmission Date: 20120825
  Serious: Yes (Other)
  Sender: FDA-Public Use
  Company Number: US-TEVA-2009011963

PATIENT
  Sex: Male

DRUGS (5)
  1. ASPIRIN [Concomitant]
  2. OMEPRAZOLE [Concomitant]
     Dates: start: 20070101
  3. PROVIGIL [Suspect]
     Indication: FATIGUE
     Dosage: 200 MILLIGRAM;
     Route: 048
  4. FENTANYL [Concomitant]
     Dosage: 2400 MICROGRAM;
     Dates: start: 20030101
  5. MULTI-VITAMIN [Concomitant]

REACTIONS (1)
  - HAEMATURIA [None]
